FAERS Safety Report 10141477 (Version 2)
Quarter: 2014Q2

REPORT INFORMATION
  Report Type: Spontaneous
  Country: US (occurrence: US)
  Receive Date: 20140429
  Receipt Date: 20140429
  Transmission Date: 20141212
  Serious: Yes (Hospitalization)
  Sender: FDA-Public Use
  Company Number: US-GLAXOSMITHKLINE-A0780401A

PATIENT
  Age: 57 Year
  Sex: Male
  Weight: 107.7 kg

DRUGS (5)
  1. AVANDIA [Suspect]
     Indication: DIABETES MELLITUS
     Dosage: 8MG PER DAY
     Route: 048
     Dates: start: 2003, end: 20061116
  2. METFORMIN [Concomitant]
  3. GLUCOTROL [Concomitant]
  4. LIPITOR [Concomitant]
  5. NEURONTIN [Concomitant]

REACTIONS (4)
  - Cerebrovascular accident [Unknown]
  - Macular oedema [Unknown]
  - Blindness [Unknown]
  - Cardiovascular disorder [Unknown]
